FAERS Safety Report 7252252-0 (Version None)
Quarter: 2011Q1

REPORT INFORMATION
  Report Type: 
  Country: None (occurrence: None)
  Receive Date: 20110129
  Receipt Date: 20100114
  Transmission Date: 20110831
  Serious: No
  Sender: FDA-Public Use
  Company Number: US-ABBOTT-10P-163-0620451-00

PATIENT
  Sex: Female

DRUGS (3)
  1. HUMIRA [Suspect]
     Dates: start: 20091228, end: 20100111
  2. HUMIRA [Suspect]
  3. HUMIRA [Suspect]
     Indication: CROHN'S DISEASE
     Dates: start: 20091214, end: 20091228

REACTIONS (9)
  - HYPERHIDROSIS [None]
  - RASH MACULAR [None]
  - PHARYNGEAL OEDEMA [None]
  - DYSPNOEA [None]
  - SWELLING FACE [None]
  - EYE SWELLING [None]
  - PYREXIA [None]
  - LIP SWELLING [None]
  - FATIGUE [None]
